FAERS Safety Report 7824714-6 (Version None)
Quarter: 2011Q4

REPORT INFORMATION
  Report Type: 
  Country: None (occurrence: None)
  Receive Date: 20111019
  Receipt Date: 20111013
  Transmission Date: 20120403
  Serious: Yes (Other)
  Sender: FDA-Public Use
  Company Number: PHHY2011DK90578

PATIENT
  Sex: Male

DRUGS (5)
  1. PREDNISOLONE [Concomitant]
  2. POTASSIUM CHLORIDE [Concomitant]
  3. ALENDRONATE SODIUM [Concomitant]
  4. ZOMETA [Suspect]
     Indication: HYPERCALCAEMIA
     Dosage: 4 MG, UNK
     Route: 042
     Dates: start: 20100121, end: 20100820
  5. FUROSEMID ^DAK^ [Concomitant]

REACTIONS (2)
  - PAIN IN JAW [None]
  - OSTEONECROSIS OF JAW [None]
